FAERS Safety Report 4521940-9 (Version None)
Quarter: 2004Q4

REPORT INFORMATION
  Report Type: 
  Country: None (occurrence: None)
  Receive Date: 20041206
  Receipt Date: 20041122
  Transmission Date: 20050328
  Serious: Yes (Other)
  Sender: FDA-Public Use
  Company Number: 2004099150

PATIENT
  Sex: Female

DRUGS (1)
  1. CELEBREX [Suspect]
     Indication: ILL-DEFINED DISORDER
     Dosage: 200 MG, DECREASED FROM 3 TO 2 TIMES A DAY
     Dates: start: 19990101

REACTIONS (2)
  - CARDIAC FAILURE CONGESTIVE [None]
  - THROMBOSIS [None]
